FAERS Safety Report 7022449-3 (Version None)
Quarter: 2010Q3

REPORT INFORMATION
  Report Type: 
  Country: None (occurrence: None)
  Receive Date: 20100930
  Receipt Date: 20100922
  Transmission Date: 20110219
  Serious: Yes (Other)
  Sender: FDA-Public Use
  Company Number: AU-ROCHE-729010

PATIENT
  Sex: Male

DRUGS (5)
  1. AVASTIN [Suspect]
     Indication: PRODUCT USED FOR UNKNOWN INDICATION
     Dosage: MAINTENANCE THERAPY
     Route: 065
  2. AVASTIN [Suspect]
     Dosage: IN COMBINATION WITH FLUOROURACIL/FOLINIC ACID/OXALIPLATIN
     Route: 065
  3. XELODA [Suspect]
     Indication: PRODUCT USED FOR UNKNOWN INDICATION
     Dosage: MAINTENANCE THERAPY
     Route: 065
  4. XELODA [Suspect]
     Dosage: THERAPY WITH REDUCED DOSAGE
     Route: 065
  5. FOLFOX REGIMEN [Concomitant]

REACTIONS (1)
  - PALMAR-PLANTAR ERYTHRODYSAESTHESIA SYNDROME [None]
